FAERS Safety Report 9292415 (Version 2)
Quarter: 2013Q3

REPORT INFORMATION
  Report Type: Spontaneous
  Country: JP (occurrence: JP)
  Receive Date: 20130516
  Receipt Date: 20130902
  Transmission Date: 20140515
  Serious: No
  Sender: FDA-Public Use
  Company Number: JP-PFIZER INC-2013149644

PATIENT
  Age: 87 Year
  Sex: Male

DRUGS (1)
  1. ESTRACYT [Suspect]
     Dosage: UNK
     Route: 048
     Dates: start: 201303, end: 201304

REACTIONS (1)
  - Pleural effusion [Recovered/Resolved]
